FAERS Safety Report 24056728 (Version 1)
Quarter: 2024Q3

REPORT INFORMATION
  Report Type: Report from Study
  Country: ZA (occurrence: ZA)
  Receive Date: 20240705
  Receipt Date: 20240705
  Transmission Date: 20241016
  Serious: Yes (Hospitalization)
  Sender: ABBVIE
  Company Number: ZA-ABBVIE-5826083

PATIENT
  Age: 18 Year
  Sex: Female

DRUGS (2)
  1. BOTOX [Suspect]
     Active Substance: ONABOTULINUMTOXINA
     Indication: Craniocerebral injury
     Dosage: TIME INTERVAL: AS NECESSARY: TOTAL DOSE 300U (100+200)?FORM STRENGTH: 100 UNIT
     Route: 065
     Dates: start: 20240408, end: 20240408
  2. BOTOX [Suspect]
     Active Substance: ONABOTULINUMTOXINA
     Indication: Craniocerebral injury
     Dosage: TIME INTERVAL: AS NECESSARY: TOTAL DOSE 300U (100+200)?FORM STRENGTH: 200 UNIT
     Route: 065
     Dates: start: 20240408, end: 20240408

REACTIONS (2)
  - Illness [Unknown]
  - Off label use [Unknown]

NARRATIVE: CASE EVENT DATE: 20240408
